FAERS Safety Report 10951260 (Version 1)
Quarter: 2015Q1

REPORT INFORMATION
  Report Type: Spontaneous
  Country: US (occurrence: None)
  Receive Date: 20150226
  Receipt Date: 20150226
  Transmission Date: 20150721
  Serious: Yes (Hospitalization)
  Sender: FDA-Public Use
  Company Number: TPA2012A03895

PATIENT
  Age: 81 Year
  Sex: Female
  Weight: 49.9 kg

DRUGS (3)
  1. OMEPRAZOLE (SANDOZ) [Suspect]
     Active Substance: OMEPRAZOLE
     Indication: GASTROOESOPHAGEAL REFLUX DISEASE
     Dosage: 1 IN 1 D
     Route: 048
     Dates: start: 2004, end: 20120215
  2. ASPIRIN (ACETYLSALICYLIC ACID) [Concomitant]
     Active Substance: ASPIRIN
  3. PREVACID [Suspect]
     Active Substance: LANSOPRAZOLE

REACTIONS (3)
  - Feeling abnormal [None]
  - Dizziness [None]
  - Tachycardia [None]

NARRATIVE: CASE EVENT DATE: 20120215
